FAERS Safety Report 20412445 (Version 1)
Quarter: 2022Q1

REPORT INFORMATION
  Report Type: Spontaneous
  Country: US (occurrence: US)
  Receive Date: 20220201
  Receipt Date: 20220201
  Transmission Date: 20220423
  Serious: Yes (Other)
  Sender: FDA-Public Use
  Company Number: US-VANDA PHARMACEUTICALS, INC-2022ILOUS001870

PATIENT
  Sex: Male

DRUGS (1)
  1. FANAPT [Suspect]
     Active Substance: ILOPERIDONE
     Indication: Bipolar disorder
     Dosage: 6 MILLIGRAM, QHS

REACTIONS (4)
  - Bipolar disorder [Unknown]
  - Off label use [Unknown]
  - Orthostatic hypotension [Unknown]
  - Sedation [Unknown]
